FAERS Safety Report 6190437-5 (Version None)
Quarter: 2009Q2

REPORT INFORMATION
  Report Type: 
  Country: None (occurrence: None)
  Receive Date: 20090513
  Receipt Date: 20090513
  Transmission Date: 20091009
  Serious: No
  Sender: FDA-Public Use
  Company Number: None

PATIENT
  Age: 43 Year
  Sex: Male

DRUGS (1)
  1. ETINDRONATE [Suspect]
     Indication: EXTRASKELETAL OSSIFICATION
     Dosage: 1400 MG DAILY PO
     Route: 048

REACTIONS (2)
  - DELUSION [None]
  - HALLUCINATION [None]
